FAERS Safety Report 24916689 (Version 1)
Quarter: 2025Q1

REPORT INFORMATION
  Report Type: Spontaneous
  Country: US (occurrence: None)
  Receive Date: 20250131
  Receipt Date: 20250131
  Transmission Date: 20250408
  Serious: Yes (Hospitalization)
  Sender: FDA-CTU
  Company Number: None

PATIENT
  Sex: Male

DRUGS (1)
  1. NIVESTYM [Suspect]
     Active Substance: FILGRASTIM-AAFI
     Indication: Diffuse large B-cell lymphoma
     Dosage: INJECT 1 SYRINGE UNDER THE SKIN 1 TIME A DAY FOR 10 DOSES OR AS DIRECTED EVERY 28 DAYS?
     Dates: start: 202408

REACTIONS (1)
  - Tumour haemorrhage [None]
